FAERS Safety Report 9637683 (Version 1)
Quarter: 2013Q4

REPORT INFORMATION
  Report Type: Spontaneous
  Country: TR (occurrence: None)
  Receive Date: 20131018
  Receipt Date: 20131018
  Transmission Date: 20140711
  Serious: Yes (Hospitalization)
  Sender: FDA-Public Use
  Company Number: 2013AP008996

PATIENT
  Age: 78 Year
  Sex: Female

DRUGS (3)
  1. SERTRALINE (SERTRALINE) [Suspect]
     Indication: BIPOLAR DISORDER
  2. LITHIUM (LITHIUM) [Suspect]
     Indication: BIPOLAR DISORDER
  3. OLANZAPINE [Suspect]
     Indication: BIPOLAR DISORDER

REACTIONS (12)
  - Toxicity to various agents [None]
  - Neurotoxicity [None]
  - Partial seizures [None]
  - Diarrhoea [None]
  - Pyrexia [None]
  - Somnolence [None]
  - Disorientation [None]
  - Tremor [None]
  - Balance disorder [None]
  - Abasia [None]
  - Hyporeflexia [None]
  - Ataxia [None]
